FAERS Safety Report 23969417 (Version 4)
Quarter: 2024Q4

REPORT INFORMATION
  Report Type: Report from Study
  Country: US (occurrence: US)
  Receive Date: 20240612
  Receipt Date: 20241020
  Transmission Date: 20250115
  Serious: Yes (Other)
  Sender: ABBVIE
  Company Number: US-ABBVIE-5794058

PATIENT
  Sex: Female
  Weight: 84 kg

DRUGS (7)
  1. RINVOQ [Suspect]
     Active Substance: UPADACITINIB
     Indication: Dermatitis atopic
     Dosage: FORM STRENGTH: 15 MILLIGRAM
     Route: 048
     Dates: start: 20230217
  2. RINVOQ [Suspect]
     Active Substance: UPADACITINIB
     Indication: Dermatitis atopic
     Dosage: FORM STRENGTH: 15 MILLIGRAM
     Route: 048
  3. LOSARTAN [Concomitant]
     Active Substance: LOSARTAN
     Indication: Blood cholesterol increased
  4. ROSUVASTATIN [Concomitant]
     Active Substance: ROSUVASTATIN
     Indication: Blood cholesterol increased
  5. OMEPRAZOLE [Concomitant]
     Active Substance: OMEPRAZOLE
     Indication: Duodenal ulcer
  6. PLAQUENIL [Suspect]
     Active Substance: HYDROXYCHLOROQUINE SULFATE
     Indication: Systemic lupus erythematosus
     Route: 065
     Dates: start: 2024, end: 20241014
  7. LEVOTHYROXINE [Concomitant]
     Active Substance: LEVOTHYROXINE
     Indication: Hyperthyroidism

REACTIONS (6)
  - Systemic lupus erythematosus [Recovered/Resolved]
  - Intervertebral disc protrusion [Recovering/Resolving]
  - Retinal injury [Recovering/Resolving]
  - Systemic lupus erythematosus [Recovering/Resolving]
  - Pain [Recovering/Resolving]
  - Back pain [Recovering/Resolving]

NARRATIVE: CASE EVENT DATE: 20240101
